FAERS Safety Report 24548868 (Version 1)
Quarter: 2024Q4

REPORT INFORMATION
  Report Type: Report from Study
  Country: RU (occurrence: RU)
  Receive Date: 20241025
  Receipt Date: 20241025
  Transmission Date: 20250115
  Serious: Yes (Other)
  Sender: ROCHE
  Company Number: RU-ROCHE-3523500

PATIENT
  Sex: Female

DRUGS (2)
  1. GLOFITAMAB [Suspect]
     Active Substance: GLOFITAMAB
     Indication: Diffuse large B-cell lymphoma
     Route: 042
     Dates: start: 20240102
  2. TRAMADOL [Concomitant]
     Active Substance: TRAMADOL

REACTIONS (6)
  - Thrombocytopenia [Recovered/Resolved]
  - Neutropenia [Recovered/Resolved]
  - Anaemia [Recovered/Resolved]
  - Inflammation [Unknown]
  - Alanine aminotransferase increased [Unknown]
  - Tumour flare [Unknown]
